FAERS Safety Report 23452108 (Version 3)
Quarter: 2024Q2

REPORT INFORMATION
  Report Type: Other
  Country: EG (occurrence: EG)
  Receive Date: 20240129
  Receipt Date: 20240612
  Transmission Date: 20240717
  Serious: Yes (Disabling)
  Sender: FDA-Public Use
  Company Number: EG-002147023-NVSC2023EG266510

PATIENT
  Age: 35 Year
  Sex: Female

DRUGS (5)
  1. XOLAIR [Suspect]
     Active Substance: OMALIZUMAB
     Indication: Urticaria
     Dosage: 150 MG, EVERY 15 DAYS FOR 6 MONTHS
     Route: 058
     Dates: start: 20231212
  2. XOLAIR [Suspect]
     Active Substance: OMALIZUMAB
     Dosage: 1 DOSAGE FORM (ONE VIAL), EVERY 15 DAYS
     Route: 058
  3. BISOPROLOL FUMARATE\HYDROCHLOROTHIAZIDE [Concomitant]
     Active Substance: BISOPROLOL FUMARATE\HYDROCHLOROTHIAZIDE
     Indication: Hypertension
     Dosage: 1 DOSAGE FORM, QD
  4. ZYRTEC (EGYPT) [Concomitant]
     Indication: Urticaria
     Dosage: 2 DOSAGE FORM, BID (START DATE: LESS THAN YEAR AGO)
     Dates: end: 20231209
  5. FEXOFENADINE [Concomitant]
     Active Substance: FEXOFENADINE HYDROCHLORIDE
     Indication: Hypersensitivity
     Dosage: UNK, HER HCP DIDN^T PRESCRIBE HER A SPECIFIC DOSE BUT SHE ONLY TAKE ONE TAB YESTERDAY
     Dates: start: 20231212

REACTIONS (11)
  - Tachycardia [Not Recovered/Not Resolved]
  - Flank pain [Not Recovered/Not Resolved]
  - Bone pain [Not Recovered/Not Resolved]
  - Limb discomfort [Recovered/Resolved]
  - General symptom [Unknown]
  - Stress [Unknown]
  - Hypoaesthesia [Recovered/Resolved]
  - Oral discomfort [Unknown]
  - Tongue discomfort [Unknown]
  - Off label use [Unknown]
  - Wrong technique in product usage process [Unknown]

NARRATIVE: CASE EVENT DATE: 20231212
